FAERS Safety Report 9183845 (Version 1)
Quarter: 2012Q4

REPORT INFORMATION
  Report Type: 
  Country: FR (occurrence: FR)
  Receive Date: 20121030
  Receipt Date: 20121030
  Transmission Date: 20130627
  Serious: Yes (Hospitalization)
  Sender: FDA-Public Use
  Company Number: FR-JNJFOC-20121013205

PATIENT
  Age: 66 Year
  Sex: Female

DRUGS (10)
  1. IXPRIM [Suspect]
     Indication: PRODUCT USED FOR UNKNOWN INDICATION
     Route: 065
     Dates: start: 20120813, end: 20120830
  2. CIPROFLOXACIN [Suspect]
     Indication: PRODUCT USED FOR UNKNOWN INDICATION
     Route: 065
     Dates: start: 20120809, end: 20120815
  3. ANAFRANIL [Suspect]
     Indication: DEPRESSION
     Route: 065
     Dates: start: 20120719, end: 20120903
  4. CONTRAMAL [Concomitant]
     Indication: PRODUCT USED FOR UNKNOWN INDICATION
     Route: 065
     Dates: start: 201209
  5. HMG COA REDUCTASE INHIBITORS [Concomitant]
     Indication: DYSLIPIDAEMIA
     Route: 048
  6. FURADANTINE [Concomitant]
     Indication: DRUG RASH WITH EOSINOPHILIA AND SYSTEMIC SYMPTOMS
     Route: 048
  7. AVLOCARDYL [Concomitant]
     Indication: MIGRAINE
     Route: 048
  8. ALEPSAL [Concomitant]
     Indication: EPILEPSY
     Route: 048
  9. ACLASTA [Concomitant]
     Indication: OSTEOPOROSIS
     Route: 042
  10. EFFEXOR [Concomitant]
     Indication: DEPRESSION
     Route: 048
     Dates: end: 20120724

REACTIONS (2)
  - Hepatocellular injury [Recovering/Resolving]
  - Cholestasis [Recovering/Resolving]
